FAERS Safety Report 21062973 (Version 2)
Quarter: 2022Q3

REPORT INFORMATION
  Report Type: Spontaneous
  Country: FR (occurrence: FR)
  Receive Date: 20220711
  Receipt Date: 20220921
  Transmission Date: 20221027
  Serious: Yes (Other)
  Sender: FDA-Public Use
  Company Number: None

PATIENT
  Age: 62 Year
  Sex: Female
  Weight: 86 kg

DRUGS (2)
  1. INREBIC [Suspect]
     Active Substance: FEDRATINIB HYDROCHLORIDE
     Indication: Primary myelofibrosis
     Route: 048
     Dates: start: 20220516
  2. INDAPAMIDE\PERINDOPRIL ARGININE [Suspect]
     Active Substance: INDAPAMIDE\PERINDOPRIL ARGININE
     Indication: Hypertension
     Dosage: 5 MG/1,25 MG, COMPRIM? PELLICUL?
     Route: 048
     Dates: end: 20220620

REACTIONS (1)
  - Acute kidney injury [Recovered/Resolved]

NARRATIVE: CASE EVENT DATE: 20220530
